FAERS Safety Report 15584064 (Version 2)
Quarter: 2018Q4

REPORT INFORMATION
  Report Type: Spontaneous
  Country: US (occurrence: US)
  Receive Date: 20181105
  Receipt Date: 20181117
  Transmission Date: 20190205
  Serious: Yes (Hospitalization, Other)
  Sender: FDA-Public Use
  Company Number: US-AUROBINDO-AUR-APL-2018-052988

PATIENT
  Age: 71 Year
  Sex: Male

DRUGS (1)
  1. VALACICLOVIR [Suspect]
     Active Substance: VALACYCLOVIR HYDROCHLORIDE
     Indication: HERPES ZOSTER
     Dosage: 1 GRAM, 3 TIMES A DAY
     Route: 065

REACTIONS (5)
  - Mental status changes [Recovered/Resolved]
  - Incorrect dose administered [Recovered/Resolved]
  - Metabolic disorder [Recovered/Resolved]
  - Blood pressure increased [Unknown]
  - Neurotoxicity [Recovered/Resolved]
